FAERS Safety Report 6237657-9 (Version None)
Quarter: 2009Q2

REPORT INFORMATION
  Report Type: 
  Country: None (occurrence: None)
  Receive Date: 20090616
  Receipt Date: 20090609
  Transmission Date: 20091009
  Serious: Yes (Death, Other)
  Sender: FDA-Public Use
  Company Number: 2009US002353

PATIENT
  Age: 17 Year
  Sex: Female

DRUGS (2)
  1. PROGRAF [Suspect]
     Indication: PROPHYLAXIS AGAINST GRAFT VERSUS HOST DISEASE
  2. METHOTREXATE [Suspect]
     Indication: PROPHYLAXIS AGAINST GRAFT VERSUS HOST DISEASE

REACTIONS (14)
  - ACUTE GRAFT VERSUS HOST DISEASE IN INTESTINE [None]
  - ACUTE GRAFT VERSUS HOST DISEASE IN LIVER [None]
  - ACUTE GRAFT VERSUS HOST DISEASE IN SKIN [None]
  - AZOTAEMIA [None]
  - BACTERIAL SEPSIS [None]
  - BK VIRUS INFECTION [None]
  - ENCEPHALITIS VIRAL [None]
  - HAEMORRHAGE INTRACRANIAL [None]
  - HYPERGLYCAEMIA [None]
  - HYPERTENSION [None]
  - KLEBSIELLA BACTERAEMIA [None]
  - NO THERAPEUTIC RESPONSE [None]
  - STAPHYLOCOCCAL BACTERAEMIA [None]
  - VIRAL HAEMORRHAGIC CYSTITIS [None]
